FAERS Safety Report 6577673-0 (Version None)
Quarter: 2010Q1

REPORT INFORMATION
  Report Type: 
  Country: None (occurrence: None)
  Receive Date: 20100211
  Receipt Date: 20100204
  Transmission Date: 20100710
  Serious: Yes (Other)
  Sender: FDA-Public Use
  Company Number: PHHY2010AT06300

PATIENT
  Sex: Female

DRUGS (1)
  1. TRILEPTAL [Suspect]
     Indication: BIPOLAR I DISORDER
     Dosage: 300 MG, UNK

REACTIONS (7)
  - BLOOD DISORDER [None]
  - DYSPHAGIA [None]
  - HAEMATOMA [None]
  - HEPATIC ENZYME INCREASED [None]
  - INCREASED APPETITE [None]
  - JOINT INJURY [None]
  - WEIGHT INCREASED [None]
